FAERS Safety Report 9656699 (Version 1)
Quarter: 2013Q4

REPORT INFORMATION
  Report Type: Spontaneous
  Country: IT (occurrence: IT)
  Receive Date: 20131030
  Receipt Date: 20131030
  Transmission Date: 20140711
  Serious: Yes (Other)
  Sender: FDA-Public Use
  Company Number: IT-BAYER-2013-130587

PATIENT
  Age: 23 Year
  Sex: Male

DRUGS (1)
  1. ASPIRINA [Suspect]
     Indication: NASOPHARYNGITIS
     Dosage: 1 DF, ONCE
     Dates: start: 20131013, end: 20131013

REACTIONS (3)
  - Bronchospasm [Recovering/Resolving]
  - Erythema [Recovering/Resolving]
  - Palatal oedema [Recovering/Resolving]
